FAERS Safety Report 7834458-2 (Version None)
Quarter: 2011Q4

REPORT INFORMATION
  Report Type: 
  Country: None (occurrence: None)
  Receive Date: 20111024
  Receipt Date: 20111018
  Transmission Date: 20120403
  Serious: Yes (Hospitalization)
  Sender: FDA-Public Use
  Company Number: FR-CEPHALON-2011005445

PATIENT
  Age: 67 Year
  Sex: Female

DRUGS (11)
  1. STABLON [Concomitant]
  2. XYZAL [Concomitant]
  3. LASIX [Concomitant]
  4. DURAGESIC-100 [Suspect]
     Route: 062
     Dates: start: 20110601, end: 20110619
  5. CLONAZEPAM [Suspect]
     Route: 048
     Dates: start: 20110619
  6. CLORAZEPATE DIPOTASSIUM [Suspect]
     Route: 048
     Dates: start: 20110619
  7. LYRICA [Concomitant]
  8. LEXOMIL ROCHE [Suspect]
     Route: 048
     Dates: start: 20110619
  9. PREVISCAN [Concomitant]
  10. ACETAMINOPHEN [Concomitant]
  11. FENTANYL CITRATE [Suspect]
     Indication: SCIATICA
     Route: 002
     Dates: start: 20110601, end: 20110619

REACTIONS (4)
  - CARDIAC DISORDER [None]
  - HYPOTENSION [None]
  - DISTURBANCE IN ATTENTION [None]
  - RENAL FAILURE [None]
